FAERS Safety Report 6850926-4 (Version None)
Quarter: 2010Q3

REPORT INFORMATION
  Report Type: 
  Country: None (occurrence: None)
  Receive Date: 20100716
  Receipt Date: 20071024
  Transmission Date: 20110219
  Serious: No
  Sender: FDA-Public Use
  Company Number: US-PFIZER INC-2007091119

PATIENT
  Sex: Female

DRUGS (13)
  1. CHANTIX [Suspect]
     Indication: SMOKING CESSATION THERAPY
     Dates: start: 20070101
  2. SIMVASTATIN [Concomitant]
  3. TRICOR [Concomitant]
  4. SEROQUEL [Concomitant]
  5. DEPAKOTE [Concomitant]
  6. OMEPRAZOLE [Concomitant]
  7. ALL OTHER THERAPEUTIC PRODUCTS [Concomitant]
  8. MELOXICAM [Concomitant]
  9. ULTRAM [Concomitant]
  10. BENADRYL [Concomitant]
  11. THERAGRAN-M [Concomitant]
  12. MOMETASONE FUROATE [Concomitant]
  13. VENTOLIN [Concomitant]

REACTIONS (2)
  - DIZZINESS [None]
  - NAUSEA [None]
